FAERS Safety Report 9175022 (Version 1)
Quarter: 2013Q1

REPORT INFORMATION
  Report Type: Spontaneous
  Country: FR (occurrence: FR)
  Receive Date: 20130320
  Receipt Date: 20130320
  Transmission Date: 20140127
  Serious: Yes (Other)
  Sender: FDA-Public Use
  Company Number: FR-ASTRAZENECA-2013SE17595

PATIENT
  Age: 38 Year
  Sex: Male

DRUGS (5)
  1. XEROQUEL [Suspect]
     Indication: BIPOLAR II DISORDER
     Route: 048
     Dates: start: 201209
  2. LEXOMIL [Suspect]
     Route: 048
     Dates: end: 201301
  3. ZOLPIDEM [Concomitant]
     Route: 048
     Dates: end: 201301
  4. LITHIUM [Concomitant]
  5. DEPAKOTE [Concomitant]

REACTIONS (2)
  - Pneumonia [Not Recovered/Not Resolved]
  - Memory impairment [Not Recovered/Not Resolved]
